FAERS Safety Report 4537789-7 (Version None)
Quarter: 2004Q4

REPORT INFORMATION
  Report Type: 
  Country: None (occurrence: None)
  Receive Date: 20041224
  Receipt Date: 20041217
  Transmission Date: 20050328
  Serious: Yes (Disabling)
  Sender: FDA-Public Use
  Company Number: US-MERCK-0412USA02245

PATIENT
  Age: 51 Year
  Sex: Female

DRUGS (4)
  1. VIOXX [Suspect]
     Route: 048
     Dates: start: 20020601, end: 20030501
  2. VIOXX [Suspect]
     Route: 048
     Dates: start: 20020601, end: 20030501
  3. RELPAX [Concomitant]
     Route: 065
  4. TOPAMAX [Concomitant]
     Route: 065

REACTIONS (1)
  - BLINDNESS CORTICAL [None]
